FAERS Safety Report 17729825 (Version 1)
Quarter: 2020Q2

REPORT INFORMATION
  Report Type: Spontaneous
  Country: US (occurrence: US)
  Receive Date: 20200430
  Receipt Date: 20200430
  Transmission Date: 20200714
  Serious: No
  Sender: FDA-Public Use
  Company Number: US-FLEXION THERAPEUTICS, INC.-2020FLS000015

PATIENT
  Sex: Female

DRUGS (1)
  1. ZILRETTA [Suspect]
     Active Substance: TRIAMCINOLONE ACETONIDE
     Indication: PRODUCT USED FOR UNKNOWN INDICATION
     Route: 014
     Dates: start: 201912, end: 201912

REACTIONS (7)
  - Weight increased [Not Recovered/Not Resolved]
  - Foreign body reaction [Unknown]
  - Depression [Unknown]
  - Swelling face [Not Recovered/Not Resolved]
  - Joint swelling [Recovered/Resolved]
  - Night sweats [Not Recovered/Not Resolved]
  - Agitation [Unknown]
